FAERS Safety Report 15673725 (Version 16)
Quarter: 2020Q4

REPORT INFORMATION
  Report Type: Spontaneous
  Country: US (occurrence: US)
  Receive Date: 20181129
  Receipt Date: 20201014
  Transmission Date: 20210113
  Serious: Yes (Hospitalization, Other)
  Sender: FDA-Public Use
  Company Number: US-PFIZER INC-2018406868

PATIENT
  Age: 38 Year
  Sex: Female
  Weight: 102 kg

DRUGS (13)
  1. EFFEXOR XR [Suspect]
     Active Substance: VENLAFAXINE HYDROCHLORIDE
     Dosage: 225 MG, DAILY(225MG DAILY TOTAL, ONE 150MG CAPSULE AND ONE 75MG CAPSULE DAILY)
  2. EFFEXOR XR [Suspect]
     Active Substance: VENLAFAXINE HYDROCHLORIDE
     Indication: ANXIETY DISORDER
     Dosage: 37.5 MG, UNK
     Route: 048
  3. EFFEXOR XR [Suspect]
     Active Substance: VENLAFAXINE HYDROCHLORIDE
     Dosage: 187.5 MG, UNK
     Route: 048
  4. EFFEXOR XR [Suspect]
     Active Substance: VENLAFAXINE HYDROCHLORIDE
     Dosage: UNK (HALF HER DOSE)
     Dates: start: 2020, end: 2020
  5. EFFEXOR XR [Suspect]
     Active Substance: VENLAFAXINE HYDROCHLORIDE
     Dosage: 37.5 MG (QUANTITY FOR 90 DAYS: 196)
  6. EFFEXOR XR [Suspect]
     Active Substance: VENLAFAXINE HYDROCHLORIDE
     Indication: ANXIETY
     Dosage: 150 MG, DAILY
     Route: 048
     Dates: start: 2006
  7. EFFEXOR XR [Suspect]
     Active Substance: VENLAFAXINE HYDROCHLORIDE
     Dosage: 225 MG, 1X/DAY (THREE 75-MG CAPSULES)
     Route: 048
     Dates: start: 201810
  8. EFFEXOR XR [Suspect]
     Active Substance: VENLAFAXINE HYDROCHLORIDE
     Dosage: 75 MG, DAILY
     Route: 048
     Dates: start: 2020, end: 2020
  9. BOTOX [Concomitant]
     Active Substance: ONABOTULINUMTOXINA
     Indication: MIGRAINE
     Dosage: UNK (MEDICATION IS INJECTED EVERY 3 MONTHS)
  10. EFFEXOR XR [Suspect]
     Active Substance: VENLAFAXINE HYDROCHLORIDE
     Indication: MAJOR DEPRESSION
     Dosage: 225 MG(75MG AND 150 MG)
     Route: 048
     Dates: start: 2004
  11. EFFEXOR XR [Suspect]
     Active Substance: VENLAFAXINE HYDROCHLORIDE
     Dosage: 225 MG, DAILY
     Route: 048
  12. DEXILANT [Concomitant]
     Active Substance: DEXLANSOPRAZOLE
     Indication: GASTROOESOPHAGEAL REFLUX DISEASE
     Dosage: 60 MG, DAILY
     Route: 048
  13. ARMOUR THYROID [Concomitant]
     Active Substance: THYROID, PORCINE
     Indication: HYPOTHYROIDISM
     Dosage: 90 MG, DAILY ( TAKEN 1ST THING IN THE MORNING WITH A SIP OF WATER)
     Route: 048

REACTIONS (15)
  - Pancreatitis [Not Recovered/Not Resolved]
  - Weight increased [Unknown]
  - Condition aggravated [Unknown]
  - Expired product administered [Unknown]
  - Drug hypersensitivity [Unknown]
  - Visual impairment [Unknown]
  - Weight decreased [Unknown]
  - Underdose [Unknown]
  - Migraine [Unknown]
  - Focal dyscognitive seizures [Unknown]
  - Deja vu [Unknown]
  - Depression [Unknown]
  - Seizure [Not Recovered/Not Resolved]
  - Suicidal ideation [Unknown]
  - Nasopharyngitis [Not Recovered/Not Resolved]

NARRATIVE: CASE EVENT DATE: 2018
